FAERS Safety Report 6116012-6 (Version None)
Quarter: 2009Q1

REPORT INFORMATION
  Report Type: 
  Country: None (occurrence: None)
  Receive Date: 20090314
  Receipt Date: 20081211
  Transmission Date: 20090719
  Serious: No
  Sender: FDA-Public Use
  Company Number: US-ABBOTT-08P-163-0492372-00

PATIENT
  Sex: Female
  Weight: 90.8 kg

DRUGS (10)
  1. HUMIRA [Suspect]
     Indication: RHEUMATOID ARTHRITIS
     Route: 058
     Dates: start: 20030101
  2. METFORMIN HCL [Concomitant]
     Indication: DIABETES MELLITUS
  3. LISINOPRIL [Concomitant]
     Indication: BLOOD PRESSURE
  4. PREDNISONE [Concomitant]
     Indication: DRUG USE FOR UNKNOWN INDICATION
  5. OMEPRAZOLE MAGNESIUM [Concomitant]
     Indication: GASTRIC DISORDER
  6. RISEDRONATE SODIUM [Concomitant]
     Indication: OSTEOPOROSIS
  7. OYSTER SHELL CALCIUM WITH VITAMIN D [Concomitant]
     Indication: DRUG USE FOR UNKNOWN INDICATION
  8. M.V.I. [Concomitant]
     Indication: DRUG USE FOR UNKNOWN INDICATION
  9. ACETYLSALICYLIC ACID [Concomitant]
     Indication: DRUG USE FOR UNKNOWN INDICATION
  10. IBUPROFEN [Concomitant]
     Indication: DRUG USE FOR UNKNOWN INDICATION
     Dosage: PRN

REACTIONS (1)
  - ANORECTAL DISCOMFORT [None]
